FAERS Safety Report 19180070 (Version 1)
Quarter: 2021Q2

REPORT INFORMATION
  Report Type: Spontaneous
  Country: US (occurrence: US)
  Receive Date: 20210426
  Receipt Date: 20210426
  Transmission Date: 20210717
  Serious: Yes (Life-Threatening, Hospitalization, Other)
  Sender: FDA-Public Use
  Company Number: None

PATIENT
  Age: 65 Year
  Sex: Male
  Weight: 96.2 kg

DRUGS (1)
  1. VANCOMYCIN [Suspect]
     Active Substance: VANCOMYCIN
     Indication: SEPSIS
     Dosage: ?          OTHER FREQUENCY:ONCE;?
     Route: 042

REACTIONS (7)
  - Respiratory arrest [None]
  - Dyspnoea [None]
  - Hypersensitivity [None]
  - Pulse absent [None]
  - Pruritus [None]
  - Unresponsive to stimuli [None]
  - Cardiac arrest [None]

NARRATIVE: CASE EVENT DATE: 20210417
